FAERS Safety Report 25517205 (Version 2)
Quarter: 2025Q3

REPORT INFORMATION
  Report Type: Report from Study
  Country: EU (occurrence: EU)
  Receive Date: 20250704
  Receipt Date: 20250910
  Transmission Date: 20251021
  Serious: Yes (Other)
  Sender: GENMAB
  Company Number: EU-ABBVIE-6348938

PATIENT
  Age: 86 Year
  Sex: Male

DRUGS (3)
  1. EPCORITAMAB [Suspect]
     Active Substance: EPCORITAMAB
     Indication: Diffuse large B-cell lymphoma
     Route: 058
     Dates: start: 20231113, end: 20231113
  2. EPCORITAMAB [Suspect]
     Active Substance: EPCORITAMAB
     Route: 058
  3. EPCORITAMAB [Suspect]
     Active Substance: EPCORITAMAB
     Dosage: FULL DOSE
     Route: 058

REACTIONS (1)
  - Disease progression [Unknown]
